FAERS Safety Report 7430345-2 (Version None)
Quarter: 2011Q2

REPORT INFORMATION
  Report Type: 
  Country: None (occurrence: None)
  Receive Date: 20110421
  Receipt Date: 20101228
  Transmission Date: 20111010
  Serious: No
  Sender: FDA-Public Use
  Company Number: US-ASTRAZENECA-2009UW08004

PATIENT
  Sex: Female

DRUGS (3)
  1. TOPROL-XL [Suspect]
     Route: 048
  2. DIGOXIN [Concomitant]
  3. COUMADIN [Concomitant]

REACTIONS (6)
  - FLATULENCE [None]
  - ELECTROCARDIOGRAM QT PROLONGED [None]
  - DRY MOUTH [None]
  - DRY EYE [None]
  - NASAL DRYNESS [None]
  - ALOPECIA [None]
